FAERS Safety Report 9694553 (Version 1)
Quarter: 2013Q4

REPORT INFORMATION
  Report Type: Spontaneous
  Country: US (occurrence: US)
  Receive Date: 20131118
  Receipt Date: 20131118
  Transmission Date: 20140711
  Serious: No
  Sender: FDA-Public Use
  Company Number: US-SA-2013SA106750

PATIENT
  Age: 54 Year
  Sex: Male

DRUGS (1)
  1. ZALTRAP [Suspect]
     Route: 065
     Dates: start: 20131014

REACTIONS (3)
  - Blood pressure increased [Unknown]
  - Chest pain [Unknown]
  - Wrong technique in drug usage process [Unknown]
